FAERS Safety Report 9466262 (Version 1)
Quarter: 2013Q3

REPORT INFORMATION
  Report Type: Spontaneous
  Country: JP (occurrence: JP)
  Receive Date: 20130820
  Receipt Date: 20130820
  Transmission Date: 20140515
  Serious: Yes (Hospitalization)
  Sender: FDA-Public Use
  Company Number: JP-PFIZER INC-2013237260

PATIENT
  Age: 45 Year
  Sex: Female

DRUGS (2)
  1. CARDENALIN [Suspect]
     Dosage: 10 DF, SINGLE
     Route: 048
  2. MICAMLO [Suspect]
     Dosage: 10 DF, SINGLE
     Route: 048

REACTIONS (3)
  - Intentional overdose [Unknown]
  - Hypotension [Recovered/Resolved]
  - Shock [Recovered/Resolved]
